FAERS Safety Report 6086204-3 (Version None)
Quarter: 2009Q1

REPORT INFORMATION
  Report Type: 
  Country: None (occurrence: None)
  Receive Date: 20090220
  Receipt Date: 20090126
  Transmission Date: 20090719
  Serious: No
  Sender: FDA-Public Use
  Company Number: US-BAYER-200910250BCC

PATIENT
  Age: 50 Year
  Sex: Female
  Weight: 59 kg

DRUGS (7)
  1. ALEVE (CAPLET) [Suspect]
     Indication: MIGRAINE
     Dosage: TOTAL DAILY DOSE: 440 MG  UNIT DOSE: 220 MG
     Route: 048
     Dates: start: 20090124
  2. ALEVE (CAPLET) [Suspect]
     Dosage: TOTAL DAILY DOSE: 440 MG  UNIT DOSE: 220 MG
     Route: 048
     Dates: start: 20090114
  3. METFORMIN [Concomitant]
  4. VYTORIN [Concomitant]
  5. XANAX [Concomitant]
  6. PREMPRO [Concomitant]
  7. CYMBALTA [Concomitant]

REACTIONS (5)
  - HYPERSENSITIVITY [None]
  - OEDEMA MOUTH [None]
  - PRURITUS [None]
  - RASH PRURITIC [None]
  - URTICARIA [None]
